FAERS Safety Report 8047012-7 (Version None)
Quarter: 2012Q1

REPORT INFORMATION
  Report Type: 
  Country: None (occurrence: None)
  Receive Date: 20120116
  Receipt Date: 20120109
  Transmission Date: 20120608
  Serious: Yes (Hospitalization)
  Sender: FDA-Public Use
  Company Number: US-BAYER-201039519NA

PATIENT
  Age: 42 Year
  Sex: Female
  Weight: 95 kg

DRUGS (25)
  1. YASMIN [Suspect]
     Indication: CONTRACEPTION
     Route: 048
     Dates: start: 20060701, end: 20070401
  2. BIAXIN [Concomitant]
     Indication: PRODUCT USED FOR UNKNOWN INDICATION
  3. OPIUM ALKALOIDS AND DERIVATIVES [Concomitant]
     Indication: PRODUCT USED FOR UNKNOWN INDICATION
     Dosage: 2 TEA SPOONS EVERY 4-6 HOURS
     Route: 048
  4. POTASSIUM CHLORIDE [Concomitant]
     Indication: PRODUCT USED FOR UNKNOWN INDICATION
     Dates: start: 20070401
  5. PROVENTIL [Concomitant]
     Indication: PRODUCT USED FOR UNKNOWN INDICATION
     Dates: start: 20050101
  6. CALCIUM CARBONATE [Concomitant]
     Indication: PRODUCT USED FOR UNKNOWN INDICATION
     Dates: start: 20070401
  7. VITAMIN B-12 [Concomitant]
  8. AVELOX [Concomitant]
     Indication: PRODUCT USED FOR UNKNOWN INDICATION
     Dosage: 400 MG (DAILY DOSE), , ORAL
     Route: 048
     Dates: start: 20050101
  9. PULMICORT [Concomitant]
     Indication: PRODUCT USED FOR UNKNOWN INDICATION
     Dosage: TOTAL DAILY DOSE: 50
     Route: 055
     Dates: start: 20050101
  10. MOTRIN [Concomitant]
     Indication: HEADACHE
  11. CODEINE W/GUAIFENESIN [Concomitant]
     Indication: PRODUCT USED FOR UNKNOWN INDICATION
     Dates: start: 20070401
  12. YAZ [Suspect]
     Indication: PRODUCT USED FOR UNKNOWN INDICATION
     Route: 048
     Dates: start: 20060701, end: 20070401
  13. LEVAQUIN [Concomitant]
     Indication: PRODUCT USED FOR UNKNOWN INDICATION
     Dates: start: 20050101
  14. ACETAMINOPHEN [Concomitant]
     Indication: HEADACHE
  15. IPRATROPIUM BROMIDE [Concomitant]
     Indication: PRODUCT USED FOR UNKNOWN INDICATION
     Dates: start: 20070401
  16. SYMPATHOMIMETICS [Concomitant]
     Dosage: 2 TEA SPOONS EVERY 4-6 HOURS
     Route: 048
  17. YASMIN [Suspect]
     Indication: MENOPAUSE
  18. ADVAIR DISKUS 100/50 [Concomitant]
     Indication: PRODUCT USED FOR UNKNOWN INDICATION
     Dosage: TOTAL DAIKY DOSE: 500
     Dates: start: 20050101
  19. XOPENEX [Concomitant]
     Indication: PRODUCT USED FOR UNKNOWN INDICATION
     Dosage: TOTAL DAILY DOSE: 1.25
     Route: 055
     Dates: start: 20050101
  20. ACIDO FOLICO [Concomitant]
  21. PREDNISONE [Concomitant]
     Indication: ASTHMA
     Dosage: 40 MG (DAILY DOSE), , ORAL
     Route: 048
     Dates: start: 20050101
  22. SINGULAIR [Concomitant]
     Indication: PRODUCT USED FOR UNKNOWN INDICATION
  23. YASMIN [Suspect]
     Indication: MIGRAINE
  24. PROZAC [Concomitant]
     Indication: HEADACHE
     Dates: start: 20000101
  25. ZITHROMAX [Concomitant]
     Indication: PRODUCT USED FOR UNKNOWN INDICATION
     Dates: start: 20070401

REACTIONS (5)
  - PULMONARY EMBOLISM [None]
  - WHEEZING [None]
  - DYSPNOEA [None]
  - HYPERHIDROSIS [None]
  - THROMBOSIS [None]
